FAERS Safety Report 23238485 (Version 3)
Quarter: 2023Q4

REPORT INFORMATION
  Report Type: Spontaneous
  Country: CN (occurrence: CN)
  Receive Date: 20231129
  Receipt Date: 20231212
  Transmission Date: 20240110
  Serious: Yes (Hospitalization, Other)
  Sender: FDA-Public Use
  Company Number: None

PATIENT
  Age: 58 Year
  Sex: Male

DRUGS (4)
  1. LINEZOLID [Suspect]
     Active Substance: LINEZOLID
     Indication: Tuberculosis
     Dosage: 0.6 GRAM, BID (EVERY 12 HOUR)
     Route: 065
     Dates: start: 20211110
  2. TACROLIMUS [Suspect]
     Active Substance: TACROLIMUS
     Indication: Prophylaxis against transplant rejection
     Dosage: 0.5 GRAM
     Route: 065
  3. CASPOFUNGIN [Concomitant]
     Active Substance: CASPOFUNGIN
     Indication: Antifungal treatment
     Dosage: UNK
     Route: 065
     Dates: start: 20211125
  4. AMPHOTERICIN B [Concomitant]
     Active Substance: AMPHOTERICIN B
     Indication: Anti-infective therapy
     Dosage: UNK
     Route: 065

REACTIONS (6)
  - Gingival bleeding [Recovered/Resolved]
  - Myelosuppression [Recovered/Resolved]
  - Chronic graft versus host disease [Unknown]
  - Pneumonia klebsiella [Unknown]
  - Tuberculosis [Unknown]
  - Tuberculous pleurisy [Unknown]

NARRATIVE: CASE EVENT DATE: 20211101
